FAERS Safety Report 5397172-1 (Version None)
Quarter: 2007Q3

REPORT INFORMATION
  Report Type: 
  Country: None (occurrence: None)
  Receive Date: 20070725
  Receipt Date: 20070713
  Transmission Date: 20080115
  Serious: Yes (Life-Threatening)
  Sender: FDA-Public Use
  Company Number: JP-TYCO HEALTHCARE/MALLINCKRODT-T200700771

PATIENT

DRUGS (2)
  1. OPTIRAY 300 [Suspect]
     Indication: COMPUTERISED TOMOGRAM ABDOMEN
     Dosage: 100 ML, SINGLE
     Route: 042
     Dates: start: 20070701, end: 20070701
  2. CEFOPERAZONE SODIUM W/SULBACTAM [Concomitant]
     Dosage: 1 G, BID
     Route: 042
     Dates: start: 20070701

REACTIONS (1)
  - ANAPHYLACTIC SHOCK [None]
